FAERS Safety Report 6761350-7 (Version None)
Quarter: 2010Q2

REPORT INFORMATION
  Report Type: 
  Country: None (occurrence: None)
  Receive Date: 20100608
  Receipt Date: 20100603
  Transmission Date: 20101027
  Serious: Yes (Death)
  Sender: FDA-Public Use
  Company Number: US-GENENTECH-302556

PATIENT
  Sex: Male
  Weight: 84 kg

DRUGS (16)
  1. RANIBIZUMAB [Suspect]
     Indication: MACULAR OEDEMA
     Dosage: UNK
     Route: 031
     Dates: start: 20070917, end: 20100308
  2. NEXIUM [Concomitant]
     Indication: GASTROOESOPHAGEAL REFLUX DISEASE
     Dosage: UNK
     Dates: start: 20030101
  3. GLYBURIDE [Concomitant]
     Indication: DIABETES MELLITUS
     Dosage: UNK
     Dates: start: 19820101
  4. NORVASC [Concomitant]
     Indication: HYPERTENSION
     Dosage: UNK
     Dates: start: 19960101
  5. ALLOPURINOL [Concomitant]
     Indication: GOUT
     Dosage: UNK
     Dates: start: 19820101
  6. COREG [Concomitant]
     Indication: LEFT VENTRICULAR DYSFUNCTION
     Dosage: UNK
     Dates: start: 20080317
  7. K-DUR [Concomitant]
     Indication: HYPOKALAEMIA
     Dosage: UNK
     Dates: start: 20080318
  8. LABETALOL HCL [Concomitant]
     Indication: HYPERTENSION
     Dosage: UNK
     Dates: start: 20080320
  9. LIPITOR [Concomitant]
     Indication: HYPERLIPIDAEMIA
     Dosage: UNK
     Dates: start: 20080321
  10. ISORDIL [Concomitant]
     Indication: HYPERTENSION
     Dosage: UNK
     Dates: start: 20080319
  11. LASIX [Concomitant]
     Indication: PULMONARY OEDEMA
     Dosage: UNK
     Dates: start: 20080321
  12. TYLENOL PM [Concomitant]
     Indication: SLEEP DISORDER
     Dosage: UNK
     Dates: start: 20080330
  13. BENADRYL [Concomitant]
     Indication: HYPERSENSITIVITY
     Dosage: UNK
     Dates: start: 20080319
  14. HUMULIN R [Concomitant]
     Indication: DIABETES MELLITUS
     Dosage: UNK
     Dates: start: 20080330
  15. PLAVIX [Concomitant]
     Indication: PROPHYLAXIS
     Dosage: UNK
     Dates: start: 20080312
  16. TRUSOPT [Concomitant]
     Indication: GLAUCOMA
     Dosage: UNK
     Dates: start: 20080320

REACTIONS (1)
  - DEATH [None]
